FAERS Safety Report 4389678-9 (Version None)
Quarter: 2004Q2

REPORT INFORMATION
  Report Type: 
  Country: None (occurrence: None)
  Receive Date: 20040630
  Receipt Date: 20040614
  Transmission Date: 20050107
  Serious: Yes (Death)
  Sender: FDA-Public Use
  Company Number: 04P-056-0263792-00

PATIENT
  Age: 35 Year
  Sex: Male

DRUGS (4)
  1. DEPAKOTE [Suspect]
     Indication: AGITATION
     Dosage: SEE IMAGE
     Route: 048
     Dates: start: 20040518, end: 20040518
  2. DEPAKOTE [Suspect]
     Indication: AGITATION
     Dosage: SEE IMAGE
     Route: 048
     Dates: start: 20040519, end: 20040521
  3. CYAMEMAZINE [Concomitant]
  4. HALOPERIDOL DECANOATE [Concomitant]

REACTIONS (4)
  - COMA [None]
  - HYPERTHERMIA [None]
  - PNEUMONIA ASPIRATION [None]
  - STATUS EPILEPTICUS [None]
